FAERS Safety Report 24023483 (Version 1)
Quarter: 2024Q2

REPORT INFORMATION
  Report Type: Report from Study
  Country: CN (occurrence: CN)
  Receive Date: 20240627
  Receipt Date: 20240627
  Transmission Date: 20240715
  Serious: No
  Sender: FDA-Public Use
  Company Number: CN-ROCHE-3311779

PATIENT
  Age: 59 Year
  Sex: Male

DRUGS (1)
  1. ALECENSA [Suspect]
     Active Substance: ALECTINIB HYDROCHLORIDE
     Indication: Non-small cell lung cancer metastatic
     Dosage: 224CAPSULES PER BOX
     Route: 048
     Dates: start: 20220625

REACTIONS (4)
  - Hepatic function abnormal [Recovering/Resolving]
  - Heart rate decreased [Unknown]
  - Skin fissures [Unknown]
  - Rash [Recovering/Resolving]
